FAERS Safety Report 7637890-5 (Version None)
Quarter: 2011Q3

REPORT INFORMATION
  Report Type: 
  Country: None (occurrence: None)
  Receive Date: 20110727
  Receipt Date: 20110721
  Transmission Date: 20111222
  Serious: Yes (Disabling, Other)
  Sender: FDA-Public Use
  Company Number: US-TEVA-291491USA

PATIENT
  Sex: Male
  Weight: 79.45 kg

DRUGS (4)
  1. BACLOFEN [Suspect]
     Route: 048
     Dates: start: 20110601, end: 20110101
  2. AMPYRA [Suspect]
     Indication: GAIT DISTURBANCE
     Dosage: 20 MILLIGRAM;
     Route: 048
     Dates: start: 20110501, end: 20110601
  3. ANCOVERT [Suspect]
     Route: 048
     Dates: start: 20110601, end: 20110101
  4. MORNIFLUMATE [Concomitant]

REACTIONS (2)
  - ABASIA [None]
  - DRUG INEFFECTIVE [None]
